FAERS Safety Report 7126999-0 (Version None)
Quarter: 2010Q4

REPORT INFORMATION
  Report Type: 
  Country: None (occurrence: None)
  Receive Date: 20101129
  Receipt Date: 20091231
  Transmission Date: 20110411
  Serious: No
  Sender: FDA-Public Use
  Company Number: US-PFIZER INC-2010000349

PATIENT
  Sex: Male
  Weight: 111 kg

DRUGS (1)
  1. VIAGRA [Suspect]
     Indication: ERECTILE DYSFUNCTION
     Dosage: 100 MG, UNK
     Dates: start: 20070101

REACTIONS (2)
  - DRUG INEFFECTIVE [None]
  - LOW DENSITY LIPOPROTEIN INCREASED [None]
